FAERS Safety Report 7930787-2 (Version None)
Quarter: 2011Q4

REPORT INFORMATION
  Report Type: 
  Country: None (occurrence: None)
  Receive Date: 20111108
  Receipt Date: 20110608
  Transmission Date: 20120403
  Serious: Yes (Other)
  Sender: FDA-Public Use
  Company Number: PHHY2011US52385

PATIENT
  Age: 56 Year
  Sex: Male

DRUGS (4)
  1. ZOMETA [Suspect]
     Dates: start: 20110101
  2. ZOMETA [Suspect]
     Dates: start: 20110202
  3. ZOMETA [Suspect]
     Dates: start: 20110401
  4. LUPRON [Concomitant]

REACTIONS (3)
  - FATIGUE [None]
  - BONE PAIN [None]
  - METASTASES TO BONE [None]
